FAERS Safety Report 11497405 (Version 1)
Quarter: 2015Q3

REPORT INFORMATION
  Report Type: Spontaneous
  Country: US (occurrence: US)
  Receive Date: 20150911
  Receipt Date: 20150911
  Transmission Date: 20151125
  Serious: Yes (Hospitalization, Other)
  Sender: FDA-Public Use
  Company Number: US-BAYER-2015-414585

PATIENT
  Age: 73 Year
  Sex: Female
  Weight: 70 kg

DRUGS (13)
  1. CIPRO [Suspect]
     Active Substance: CIPROFLOXACIN HYDROCHLORIDE
  2. CALTRATE [CALCIUM CARBONATE] [Concomitant]
     Indication: OSTEOPOROSIS
     Dosage: UNK, BID
     Dates: start: 20150728
  3. MAGNESIUM OXIDE. [Concomitant]
     Active Substance: MAGNESIUM OXIDE
     Indication: ATRIAL FIBRILLATION
     Dosage: 1/2 DAILY
     Route: 048
  4. PRILOSEC [Concomitant]
     Active Substance: OMEPRAZOLE MAGNESIUM
     Dosage: 20 MG, EVERY OTHER DAY
     Route: 048
  5. ATIVAN [Concomitant]
     Active Substance: LORAZEPAM
     Indication: ANXIETY
     Dosage: 1 MG, UNK
     Route: 048
     Dates: start: 20150713
  6. QUINAPRIL [Concomitant]
     Active Substance: QUINAPRIL\QUINAPRIL HYDROCHLORIDE
     Indication: BLOOD PRESSURE ABNORMAL
     Dosage: 20 MG, QD
  7. APIXABAN [Concomitant]
     Active Substance: APIXABAN
     Indication: ANTICOAGULANT THERAPY
     Dosage: 5 MG, BID
     Route: 048
  8. CENTRUM SILVER [Concomitant]
     Active Substance: VITAMINS
     Dosage: ONE DAILY WITH MEAL
     Dates: start: 20150714
  9. SOTALOL. [Suspect]
     Active Substance: SOTALOL
     Indication: ATRIAL FIBRILLATION
     Dosage: 80 MG, BID
  10. CYMBALTA [Concomitant]
     Active Substance: DULOXETINE HYDROCHLORIDE
  11. ARMIDEX [Concomitant]
     Indication: BREAST CANCER
     Dosage: 1 MG, UNK
     Route: 048
     Dates: start: 201202
  12. APIXABAN [Concomitant]
     Active Substance: APIXABAN
     Indication: ATRIAL FIBRILLATION
  13. TURMERIC [Concomitant]
     Active Substance: TURMERIC
     Indication: NEOPLASM MALIGNANT
     Dosage: 1 TABLET,EVERY OTHER DAY

REACTIONS (11)
  - Diarrhoea [Not Recovered/Not Resolved]
  - Feeling abnormal [None]
  - Intestinal obstruction [None]
  - Nausea [None]
  - Haemorrhoidal haemorrhage [None]
  - Colitis [None]
  - Drug ineffective [None]
  - Intestinal obstruction [Not Recovered/Not Resolved]
  - Pain [Recovered/Resolved]
  - Depression [None]
  - Malaise [None]

NARRATIVE: CASE EVENT DATE: 20150814
